FAERS Safety Report 16150007 (Version 6)
Quarter: 2020Q2

REPORT INFORMATION
  Report Type: Spontaneous
  Country: CO (occurrence: CO)
  Receive Date: 20190403
  Receipt Date: 20200602
  Transmission Date: 20200713
  Serious: Yes (Death, Other)
  Sender: FDA-Public Use
  Company Number: CO-PFIZER INC-2019144193

PATIENT
  Age: 56 Year
  Sex: Female

DRUGS (3)
  1. REAMPLA [Suspect]
     Active Substance: PALBOCICLIB
     Indication: BREAST CANCER METASTATIC
     Dosage: 125 MG, UNK
     Route: 048
     Dates: start: 201901, end: 2019
  2. REAMPLA [Suspect]
     Active Substance: PALBOCICLIB
     Dosage: 125 MG, UNK
     Route: 048
     Dates: start: 2019, end: 201903
  3. REAMPLA [Suspect]
     Active Substance: PALBOCICLIB
     Dosage: 125 MG, UNK
     Route: 048
     Dates: start: 20190514

REACTIONS (9)
  - Hypersensitivity [Unknown]
  - Pericardial effusion [Unknown]
  - Nasopharyngitis [Unknown]
  - Bone pain [Unknown]
  - Death [Fatal]
  - Diarrhoea [Recovered/Resolved]
  - Cough [Unknown]
  - Dyspnoea [Unknown]
  - Myalgia [Unknown]

NARRATIVE: CASE EVENT DATE: 201901
